FAERS Safety Report 9508873 (Version 1)
Quarter: 2013Q1

REPORT INFORMATION
  Report Type: Spontaneous
  Country: US (occurrence: None)
  Receive Date: 20130305
  Receipt Date: 20130305
  Transmission Date: 20140127
  Serious: Yes (Other)
  Sender: FDA-Public Use
  Company Number: 163-21880-12090556

PATIENT
  Age: 54 Year
  Sex: Female

DRUGS (5)
  1. REVLIMID [Suspect]
     Indication: PLASMA CELL MYELOMA
     Dosage: 10 MG, 28 IN 28 D, PO
     Dates: start: 20120627
  2. ZOMETA (ZOLEDRONIC ACID) [Concomitant]
  3. ZYRTEC (CETIRIZINE HYDROCHLORIDE) [Concomitant]
  4. ASPIRIN [Concomitant]
  5. GABAPENTIN (GABAPENTIN) [Concomitant]

REACTIONS (6)
  - Seasonal allergy [None]
  - Herpes zoster [None]
  - Neuropathy peripheral [None]
  - Cough [None]
  - Pulmonary congestion [None]
  - Lip swelling [None]
